FAERS Safety Report 26169727 (Version 2)
Quarter: 2025Q4

REPORT INFORMATION
  Report Type: Spontaneous
  Country: US (occurrence: US)
  Receive Date: 20251217
  Receipt Date: 20251222
  Transmission Date: 20260117
  Serious: Yes (Other)
  Sender: INCYTE
  Company Number: US-INCYTE CORPORATION-2025IN013929

PATIENT
  Age: 54 Year

DRUGS (1)
  1. JAKAFI [Suspect]
     Active Substance: RUXOLITINIB
     Indication: Peripheral T-cell lymphoma unspecified
     Dosage: 5 MILLIGRAM, BID
     Route: 061

REACTIONS (3)
  - Peripheral T-cell lymphoma unspecified [Unknown]
  - Disease progression [Unknown]
  - Off label use [Unknown]
